FAERS Safety Report 20645739 (Version 1)
Quarter: 2022Q1

REPORT INFORMATION
  Report Type: Spontaneous
  Country: CN (occurrence: CN)
  Receive Date: 20220328
  Receipt Date: 20220328
  Transmission Date: 20220424
  Serious: Yes (Other)
  Sender: FDA-Public Use
  Company Number: CN-SA-SAC20220323001286

PATIENT
  Age: 66 Year
  Sex: Male
  Weight: 71 kg

DRUGS (3)
  1. ASPIRIN [Suspect]
     Active Substance: ASPIRIN
     Indication: Thrombosis
     Dosage: 100 MG, QD
     Route: 048
     Dates: start: 20220302, end: 20220313
  2. ENOXAPARIN SODIUM [Suspect]
     Active Substance: ENOXAPARIN SODIUM
     Indication: Coagulation time prolonged
     Dosage: 0.4 ML, BID
     Route: 058
     Dates: start: 20220304, end: 20220306
  3. TICAGRELOR [Concomitant]
     Active Substance: TICAGRELOR
     Indication: Thrombosis
     Dosage: 90MG BID
     Route: 048
     Dates: start: 20220305, end: 20220313

REACTIONS (7)
  - Angina unstable [Recovering/Resolving]
  - Arteriosclerosis coronary artery [Recovering/Resolving]
  - Chest pain [Recovering/Resolving]
  - Hypertension [Recovering/Resolving]
  - Hyperlipidaemia [Recovering/Resolving]
  - Coronary artery disease [Recovering/Resolving]
  - Epistaxis [Recovering/Resolving]

NARRATIVE: CASE EVENT DATE: 20220307
